FAERS Safety Report 21330573 (Version 2)
Quarter: 2022Q4

REPORT INFORMATION
  Report Type: Other
  Country: US (occurrence: US)
  Receive Date: 20220913
  Receipt Date: 20221027
  Transmission Date: 20230113
  Serious: Yes (Other)
  Sender: FDA-Public Use
  Company Number: US-GBT-016150

PATIENT
  Age: 40 Year
  Sex: Female

DRUGS (3)
  1. OXBRYTA [Suspect]
     Active Substance: VOXELOTOR
     Indication: Sickle cell disease
     Dates: start: 2019
  2. ADAKVEO [Concomitant]
     Active Substance: CRIZANLIZUMAB-TMCA
  3. HYDROXYUREA [Concomitant]
     Active Substance: HYDROXYUREA

REACTIONS (4)
  - Pneumonia [Recovered/Resolved]
  - Sickle cell anaemia with crisis [Unknown]
  - COVID-19 [Recovered/Resolved]
  - Therapeutic product effect decreased [Recovered/Resolved]

NARRATIVE: CASE EVENT DATE: 20200701
